FAERS Safety Report 8376771 (Version 2)
Quarter: 2013Q1

REPORT INFORMATION
  Report Type: Report from Study
  Country: US (occurrence: US)
  Receive Date: 20120129
  Receipt Date: 20130129
  Transmission Date: 20140127
  Serious: No
  Sender: FDA-Public Use
  Company Number: US-ABBOTT-11P-163-0880721-00

PATIENT
  Age: 48 Year
  Sex: Female

DRUGS (14)
  1. HUMIRA 40 MG/ 0.8 ML PRE-FILLED SYRINGE [Suspect]
     Indication: RHEUMATOID ARTHRITIS
     Dates: start: 20111026
  2. HUMIRA 40 MG/ 0.8 ML PRE-FILLED SYRINGE [Suspect]
     Dosage: MD WANTS WEEKLY FOR 1 MONTH
  3. TEMAZEPAM [Concomitant]
     Indication: INSOMNIA
  4. LOVASTATIN [Concomitant]
     Indication: BLOOD CHOLESTEROL
  5. LISINOPRIL [Concomitant]
     Indication: BLOOD PRESSURE
  6. LEXAPRO [Concomitant]
     Indication: DEPRESSION
  7. LORATADINE [Concomitant]
     Indication: HYPERSENSITIVITY
  8. FOLIC ACID [Concomitant]
     Indication: VITAMIN SUPPLEMENTATION
  9. ASPIRIN [Concomitant]
     Indication: PRODUCT USED FOR UNKNOWN INDICATION
  10. METHOTREXATE [Concomitant]
     Indication: RHEUMATOID ARTHRITIS
     Dosage: FOUR 2.5 MG TABLETS WEEKLY
  11. MOTRIN [Concomitant]
     Indication: PAIN
  12. T3 [Concomitant]
     Indication: PAIN
  13. ALBUTEROL [Concomitant]
     Indication: ASTHMA
  14. SUMATRIPTAN SUCCINATE [Concomitant]
     Indication: MIGRAINE
     Route: 050

REACTIONS (8)
  - Fatigue [Not Recovered/Not Resolved]
  - Headache [Not Recovered/Not Resolved]
  - Oropharyngeal pain [Not Recovered/Not Resolved]
  - Throat irritation [Not Recovered/Not Resolved]
  - Cough [Not Recovered/Not Resolved]
  - Increased upper airway secretion [Not Recovered/Not Resolved]
  - Pain [Not Recovered/Not Resolved]
  - Rheumatoid arthritis [Not Recovered/Not Resolved]
